FAERS Safety Report 7756537-0 (Version None)
Quarter: 2011Q3

REPORT INFORMATION
  Report Type: 
  Country: None (occurrence: None)
  Receive Date: 20110831
  Receipt Date: 20110816
  Transmission Date: 20111222
  Serious: Yes (Death)
  Sender: FDA-Public Use
  Company Number: 2011PROUSA00578

PATIENT
  Age: 81 Year
  Sex: Male
  Weight: 79.4 kg

DRUGS (10)
  1. PROVENGE [Suspect]
     Indication: PROSTATE CANCER METASTATIC
     Dosage: 250 ML, SINGLE, INTRAVENOUS
     Route: 042
     Dates: start: 20110805, end: 20110805
  2. ASPIRIN [Concomitant]
  3. LIPITOR (ATORVASTATNI CALCIUM) [Concomitant]
  4. ZYRTEC [Concomitant]
  5. COLACE (DOCUSATE SODIUM) [Concomitant]
  6. GLUCOSAMINE (GLUCOSAMINE) [Concomitant]
  7. STALEVO 100 [Concomitant]
  8. DIETHYLSTILBESTROL [Concomitant]
  9. PREDELTIN (PREDNISONE) [Concomitant]
  10. REQUIP [Concomitant]

REACTIONS (2)
  - DISEASE PROGRESSION [None]
  - PROSTATE CANCER [None]
